FAERS Safety Report 5286163-7 (Version None)
Quarter: 2007Q1

REPORT INFORMATION
  Report Type: 
  Country: None (occurrence: None)
  Receive Date: 20070116
  Receipt Date: 20061109
  Transmission Date: 20070707
  Serious: No
  Sender: FDA-Public Use
  Company Number: 2006SP003977

PATIENT
  Age: 60 Year
  Sex: Female
  Weight: 83.4619 kg

DRUGS (12)
  1. LUNESTA [Suspect]
     Indication: INSOMNIA
     Dosage: SEE IMAGE
     Route: 048
     Dates: start: 20060101, end: 20061024
  2. LUNESTA [Suspect]
     Indication: INSOMNIA
     Dosage: SEE IMAGE
     Route: 048
     Dates: start: 20061024, end: 20061107
  3. VALSARTAN [Concomitant]
  4. FOLIC ACID [Concomitant]
  5. PIOGLITAZONE [Concomitant]
  6. OMEPRAZOLE [Concomitant]
  7. SIMVASTATIN [Concomitant]
  8. ASPIRIN [Concomitant]
  9. METFORMIN HCL [Concomitant]
  10. NIACIN [Concomitant]
  11. CALTRATE +D [Concomitant]
  12. FISH OIL [Concomitant]

REACTIONS (3)
  - ANXIETY [None]
  - BLOOD GLUCOSE INCREASED [None]
  - HEART RATE IRREGULAR [None]
